FAERS Safety Report 4808687-6 (Version None)
Quarter: 2005Q4

REPORT INFORMATION
  Report Type: 
  Country: None (occurrence: None)
  Receive Date: 20051021
  Receipt Date: 20020830
  Transmission Date: 20060501
  Serious: Yes (Life-Threatening)
  Sender: FDA-Public Use
  Company Number: US_020987569

PATIENT
  Age: 66 Year
  Sex: Female
  Weight: 43 kg

DRUGS (2)
  1. ZYPREXA [Suspect]
     Indication: SCHIZOPHRENIA
     Dosage: 10 MG /DAY
     Route: 048
     Dates: start: 20020730, end: 20020809
  2. HALCION [Concomitant]

REACTIONS (2)
  - MALAISE [None]
  - PLATELET COUNT DECREASED [None]
